FAERS Safety Report 4331712-6 (Version None)
Quarter: 2004Q2

REPORT INFORMATION
  Report Type: 
  Country: None (occurrence: None)
  Receive Date: 20040405
  Receipt Date: 20030407
  Transmission Date: 20050107
  Serious: No
  Sender: FDA-Public Use
  Company Number: US-GLAXOSMITHKLINE-A0403739A

PATIENT
  Age: 9 Year
  Sex: Female

DRUGS (2)
  1. FLOVENT [Suspect]
     Indication: COUGH
     Dosage: 2PUFF TWICE PER DAY
     Route: 055
     Dates: start: 19991129, end: 20010308
  2. ADVAIR DISKUS 100/50 [Suspect]
     Indication: COUGH
     Dosage: 1PUFF TWICE PER DAY
     Route: 055
     Dates: start: 20030116, end: 20030226

REACTIONS (1)
  - TOOTH DISCOLOURATION [None]
